FAERS Safety Report 5708720-3 (Version None)
Quarter: 2008Q2

REPORT INFORMATION
  Report Type: 
  Country: None (occurrence: None)
  Receive Date: 20080417
  Receipt Date: 20080407
  Transmission Date: 20081010
  Serious: Yes (Disabling)
  Sender: FDA-Public Use
  Company Number: GB-ELI_LILLY_AND_COMPANY-GB200804002205

PATIENT
  Age: 49 Year
  Sex: Male

DRUGS (5)
  1. CYMBALTA [Suspect]
     Indication: DEPRESSION
     Dosage: 90 MG, UNK
     Route: 048
     Dates: start: 20071217, end: 20080201
  2. LEVOTHYROXINE SODIUM [Concomitant]
     Indication: HYPOTHYROIDISM
     Dosage: 100 UG, UNK
     Route: 048
  3. LITHIUM CARBONATE [Concomitant]
     Indication: MANIA
     Dosage: 800 MG, UNK
     Route: 048
  4. OLANZAPINE [Concomitant]
     Indication: MANIA
     Dosage: 10 MG, UNK
     Route: 048
  5. VALPROATE SODIUM [Concomitant]
     Indication: MANIA
     Dosage: 80 UNK, 2/D

REACTIONS (2)
  - MICTURITION URGENCY [None]
  - URINARY INCONTINENCE [None]
